FAERS Safety Report 18034404 (Version 2)
Quarter: 2021Q2

REPORT INFORMATION
  Report Type: Spontaneous
  Country: US (occurrence: US)
  Receive Date: 20200716
  Receipt Date: 20210629
  Transmission Date: 20210717
  Serious: Yes (Other)
  Sender: FDA-Public Use
  Company Number: US-TEVA-2020-US-1802135

PATIENT
  Sex: Female

DRUGS (4)
  1. HYDROCODONE [Suspect]
     Active Substance: HYDROCODONE
     Route: 064
  2. CODEINE [Suspect]
     Active Substance: CODEINE
     Route: 064
  3. OXYMORPHONE [Suspect]
     Active Substance: OXYMORPHONE
     Route: 064
  4. OXYCODONE [Suspect]
     Active Substance: OXYCODONE
     Route: 064

REACTIONS (8)
  - Drug withdrawal syndrome neonatal [Unknown]
  - Affective disorder [Not Recovered/Not Resolved]
  - Developmental delay [Unknown]
  - Pain [Unknown]
  - Foetal exposure during pregnancy [Unknown]
  - Cognitive disorder [Not Recovered/Not Resolved]
  - Disturbance in attention [Not Recovered/Not Resolved]
  - Drug dependence [Unknown]
